FAERS Safety Report 7121568-0 (Version None)
Quarter: 2010Q4

REPORT INFORMATION
  Report Type: 
  Country: None (occurrence: None)
  Receive Date: 20101119
  Receipt Date: 20101119
  Transmission Date: 20110411
  Serious: Yes (Hospitalization)
  Sender: FDA-Public Use
  Company Number: None

PATIENT
  Age: 51 Year
  Sex: Male
  Weight: 88.77 kg

DRUGS (1)
  1. DAPTOMYCIN [Suspect]
     Indication: OSTEOMYELITIS
     Dosage: 700 MG EVERY DAY IV
     Route: 042
     Dates: start: 20101012, end: 20101019

REACTIONS (2)
  - BLOOD PRESSURE INCREASED [None]
  - RENAL IMPAIRMENT [None]
